FAERS Safety Report 16121098 (Version 1)
Quarter: 2019Q1

REPORT INFORMATION
  Report Type: Spontaneous
  Country: FR (occurrence: FR)
  Receive Date: 20190327
  Receipt Date: 20190327
  Transmission Date: 20190418
  Serious: Yes (Life-Threatening)
  Sender: FDA-Public Use
  Company Number: FR-TEVA-2019-FR-1029030

PATIENT
  Age: 40 Year
  Sex: Female
  Weight: 68 kg

DRUGS (14)
  1. KETOPROFENE [Suspect]
     Active Substance: KETOPROFEN
     Indication: BACK PAIN
     Dosage: 200 MILLIGRAM DAILY;
     Route: 048
     Dates: start: 20190212, end: 20190220
  2. OXYCONTIN [Suspect]
     Active Substance: OXYCODONE HYDROCHLORIDE
     Indication: BACK PAIN
     Dosage: 2 DOSAGE FORMS DAILY;
     Route: 048
     Dates: start: 20190220, end: 20190223
  3. ACUPAN [Suspect]
     Active Substance: NEFOPAM HYDROCHLORIDE
     Indication: BACK PAIN
     Dosage: 3 DOSAGE FORMS DAILY;
     Route: 048
     Dates: start: 20190216, end: 20190220
  4. DOLIPRANE [Suspect]
     Active Substance: ACETAMINOPHEN
     Indication: BACK PAIN
     Dosage: 5 DOSAGE FORMS DAILY;
     Route: 048
     Dates: start: 20190216, end: 20190220
  5. MOVICOL [Suspect]
     Active Substance: POLYETHYLENE GLYCOL 3350\POTASSIUM CHLORIDE\SODIUM BICARBONATE\SODIUM CHLORIDE
     Indication: CONSTIPATION
     Dosage: 1 DOSAGE FORMS DAILY;
     Route: 048
     Dates: start: 20190216, end: 20190220
  6. SYNACTHENE RETARD 1 MG/1 ML, SUSPENSION INJECTABLE I.M. [Suspect]
     Active Substance: COSYNTROPIN
     Indication: BACK PAIN
     Dosage: 1 DOSAGE FORMS DAILY;
     Route: 030
     Dates: start: 20190207, end: 20190211
  7. LUMIRELAX (METHYL NICOTINATE\METHOCARBAMOL) [Suspect]
     Active Substance: METHOCARBAMOL\METHYL NICOTINATE
     Indication: BACK PAIN
     Dosage: 2 DOSAGE FORMS DAILY;
     Route: 048
     Dates: start: 20190218, end: 20190220
  8. TOPALGIC 50 MG, G?LULE [Suspect]
     Active Substance: TRAMADOL HYDROCHLORIDE
     Indication: BACK PAIN
     Dosage: 3 DOSAGE FORMS DAILY;
     Route: 048
     Dates: start: 20190216, end: 20190220
  9. LEVETIRACETAM. [Concomitant]
     Active Substance: LEVETIRACETAM
  10. LEFLUNOMIDE. [Suspect]
     Active Substance: LEFLUNOMIDE
     Indication: RHEUMATOID ARTHRITIS
     Dosage: 20 MILLIGRAM DAILY;
     Route: 048
     Dates: end: 20190220
  11. LAMOTRIGINE. [Concomitant]
     Active Substance: LAMOTRIGINE
  12. ESOMEPRAZOLE. [Concomitant]
     Active Substance: ESOMEPRAZOLE MAGNESIUM
  13. OXCARBAZEPINE. [Concomitant]
     Active Substance: OXCARBAZEPINE
  14. OXYNORMORO 5 MG, COMPRIM? ORODISPERSIBLE [Suspect]
     Active Substance: OXYCODONE HYDROCHLORIDE
     Indication: BACK PAIN
     Route: 048
     Dates: start: 20190220, end: 20190220

REACTIONS (3)
  - Shock haemorrhagic [Recovered/Resolved]
  - Peptic ulcer [Recovering/Resolving]
  - Haematemesis [Recovered/Resolved]

NARRATIVE: CASE EVENT DATE: 20190220
